FAERS Safety Report 16808734 (Version 2)
Quarter: 2019Q3

REPORT INFORMATION
  Report Type: Report from Study
  Country: US (occurrence: US)
  Receive Date: 20190916
  Receipt Date: 20190930
  Transmission Date: 20191005
  Serious: Yes (Other)
  Sender: FDA-Public Use
  Company Number: US-ROCHE-2401294

PATIENT
  Age: 50 Year
  Sex: Female
  Weight: 68.1 kg

DRUGS (2)
  1. OCREVUS [Suspect]
     Active Substance: OCRELIZUMAB
     Indication: PRIMARY PROGRESSIVE MULTIPLE SCLEROSIS
     Dosage: THAN 600 MG EVERY 6 MONTHS, ON /NOV/2018 AND 07/SEP/2018, SHE RECEIVED THERAPY WITH IV OCRELIZUMAB.
     Route: 042
     Dates: start: 20180820, end: 201811
  2. OCREVUS [Suspect]
     Active Substance: OCRELIZUMAB
     Dosage: ON 06/SEP/2019 AND 12/SEP/2019, SHE RECEIVED THERAPY WITH OCRELIZUMAB
     Route: 042
     Dates: start: 20190308

REACTIONS (1)
  - Urinary tract infection [Not Recovered/Not Resolved]

NARRATIVE: CASE EVENT DATE: 201908
